FAERS Safety Report 8876357 (Version 6)
Quarter: 2016Q3

REPORT INFORMATION
  Report Type: Report from Study
  Country: CA (occurrence: CA)
  Receive Date: 20121031
  Receipt Date: 20160923
  Transmission Date: 20161109
  Serious: Yes (Hospitalization, Other)
  Sender: FDA-Public Use
  Company Number: PHMT2006CA02225

PATIENT
  Sex: Male

DRUGS (8)
  1. LIPITOR [Concomitant]
     Active Substance: ATORVASTATIN CALCIUM
     Indication: PRODUCT USED FOR UNKNOWN INDICATION
     Dosage: UNK UKN, UNK
     Route: 065
  2. PAXIL [Concomitant]
     Active Substance: PAROXETINE HYDROCHLORIDE
     Indication: PRODUCT USED FOR UNKNOWN INDICATION
     Dosage: UNK UKN, UNK
     Route: 065
  3. SANDOSTATIN LAR DEPOT [Suspect]
     Active Substance: OCTREOTIDE ACETATE
     Dosage: 20 MG, QMO, EVERY 4 WEEKS
     Route: 030
     Dates: start: 200806, end: 20081006
  4. HYDROCHLOROTHIAZIDE. [Concomitant]
     Active Substance: HYDROCHLOROTHIAZIDE
     Indication: PRODUCT USED FOR UNKNOWN INDICATION
     Dosage: UNK UKN, UNK
     Route: 065
  5. SANDOSTATIN LAR DEPOT [Suspect]
     Active Substance: OCTREOTIDE ACETATE
     Indication: CARCINOID TUMOUR
     Dosage: 30 MG, QMO
     Route: 030
     Dates: start: 20060811, end: 200806
  6. SANDOSTATIN LAR DEPOT [Suspect]
     Active Substance: OCTREOTIDE ACETATE
     Dosage: 60 MG, QMO, EVERY 4 WEEKS
     Route: 030
     Dates: start: 2015
  7. SANDOSTATIN LAR DEPOT [Suspect]
     Active Substance: OCTREOTIDE ACETATE
     Dosage: 30 MG, QMO, EVERY 4 WEEKS
     Route: 030
     Dates: start: 20081103, end: 2015
  8. LOSEC [Concomitant]
     Active Substance: OMEPRAZOLE
     Indication: PRODUCT USED FOR UNKNOWN INDICATION
     Dosage: UNK UKN, UNK
     Route: 065

REACTIONS (14)
  - Blood pressure increased [Recovering/Resolving]
  - Blood pressure decreased [Unknown]
  - Blood potassium decreased [Unknown]
  - Musculoskeletal stiffness [Unknown]
  - Hepatic lesion [Unknown]
  - Injection site mass [Unknown]
  - Drug ineffective [Unknown]
  - Hepatic neoplasm [Recovering/Resolving]
  - Diarrhoea [Not Recovered/Not Resolved]
  - Blood glucose increased [Unknown]
  - Fatigue [Not Recovered/Not Resolved]
  - Flushing [Unknown]
  - Nausea [Not Recovered/Not Resolved]
  - Injection site pain [Unknown]
